FAERS Safety Report 5632273-1 (Version None)
Quarter: 2008Q1

REPORT INFORMATION
  Report Type: 
  Country: None (occurrence: None)
  Receive Date: 20080213
  Receipt Date: 20080125
  Transmission Date: 20080703
  Serious: Yes (Other)
  Sender: FDA-Public Use
  Company Number: DSA_31401_2008

PATIENT
  Sex: Male

DRUGS (3)
  1. LORAZEPAM [Suspect]
     Dosage: ^SITUATIONAL^ FOUR TABLETS (EACH 1MG) WITHIN 3 WEEKS TRANSPLACENTAL
     Route: 064
     Dates: end: 20070401
  2. CYMBALTA [Suspect]
     Dosage: 120 MG QD TRANSPLACENTAL
     Route: 064
     Dates: end: 20070329
  3. FRAXIPARIN [Concomitant]

REACTIONS (11)
  - CAESAREAN SECTION [None]
  - CONGENITAL ARTERIAL MALFORMATION [None]
  - DRUG EXPOSURE DURING PREGNANCY [None]
  - FOETAL GROWTH RETARDATION [None]
  - HAEMATOMA [None]
  - OLIGOHYDRAMNIOS [None]
  - PLACENTAL INSUFFICIENCY [None]
  - PREMATURE LABOUR [None]
  - SINGLE UMBILICAL ARTERY [None]
  - SMALL FOR DATES BABY [None]
  - VAGINAL HAEMORRHAGE [None]
